FAERS Safety Report 7576255-1 (Version None)
Quarter: 2011Q2

REPORT INFORMATION
  Report Type: 
  Country: None (occurrence: None)
  Receive Date: 20110628
  Receipt Date: 20110613
  Transmission Date: 20111010
  Serious: Yes (Hospitalization, Other)
  Sender: FDA-Public Use
  Company Number: US-BAYER-200940126NA

PATIENT
  Age: 27 Year
  Sex: Male
  Weight: 98.9 kg

DRUGS (25)
  1. TRASYLOL [Suspect]
     Indication: AORTIC SURGERY
     Dosage: 200 CC PUMP PRIME
     Route: 042
     Dates: start: 20020307, end: 20020308
  2. RED BLOOD CELLS [Concomitant]
     Dosage: 9 U, ONCE
     Route: 042
     Dates: start: 20020307
  3. CRYOPRECIPITATES [Concomitant]
     Dosage: 40 U, ONCE
     Route: 042
     Dates: start: 20020307
  4. VERSED [Concomitant]
     Dosage: 7 TOTAL
     Route: 042
     Dates: start: 20020307
  5. TRASYLOL [Suspect]
  6. FRESH FROZEN PLASMA [Concomitant]
     Dosage: 23 U, ONCE
     Route: 042
     Dates: start: 20020307
  7. AMOXICILLIN [Concomitant]
     Indication: PNEUMONIA
  8. ZINACEF [Concomitant]
     Dosage: 1.5 GRAMS
     Route: 042
     Dates: start: 20020307
  9. HEPARIN [Concomitant]
     Dosage: 58000 UNITS
     Route: 042
     Dates: start: 20020307
  10. NEOSYNEPHRINE [Concomitant]
     Dosage: AS NEEDED
     Route: 042
     Dates: start: 20020307
  11. TRASYLOL [Suspect]
  12. PLATELETS [Concomitant]
     Dosage: 7 U, ONCE
     Route: 042
     Dates: start: 20020307
  13. HEPARIN [Concomitant]
     Dosage: 10,000 UNITS
     Dates: start: 20020307
  14. SODIUM BICARBONATE [Concomitant]
     Dosage: 3 AMPULES TOTAL
     Route: 042
     Dates: start: 20020307
  15. PROTAMINE SULFATE [Concomitant]
     Dosage: 550 MG,TOTAL
  16. CARDIOPLEGIA [Concomitant]
     Indication: CARDIOPULMONARY BYPASS
     Dosage: 2700 ML, UNK
  17. TRASYLOL [Suspect]
  18. DIURIL [Concomitant]
     Dosage: UNK
     Dates: start: 20020308, end: 20020310
  19. CALCIUM CHLORIDE [Concomitant]
     Dosage: 4 GRAMS
     Route: 042
     Dates: start: 20020307
  20. HEPARIN [Concomitant]
     Dosage: 7000 UNITS
     Route: 042
     Dates: start: 20020307
  21. SODIUM BICARBONATE [Concomitant]
     Dosage: 350 MILLIEQUIVALENTS
     Route: 042
     Dates: start: 20020307
  22. SODIUM BICARBONATE [Concomitant]
     Dosage: 75 MILLIEQUIVALENTS
     Route: 042
     Dates: start: 20020307
  23. LASIX [Concomitant]
     Indication: CARDIAC FAILURE ACUTE
     Dosage: 120MG TOTAL
     Route: 042
     Dates: start: 20020307
  24. BUMEX [Concomitant]
     Dosage: UNK
     Route: 042
     Dates: start: 20020308, end: 20020310
  25. LEVOPHED [Concomitant]
     Dosage: TITRATE
     Route: 042
     Dates: start: 20020307

REACTIONS (14)
  - PSYCHIATRIC SYMPTOM [None]
  - STRESS [None]
  - FEAR [None]
  - RENAL FAILURE [None]
  - PAIN [None]
  - RENAL INJURY [None]
  - HEPATIC FAILURE [None]
  - ANXIETY [None]
  - HYPOTENSION [None]
  - EMOTIONAL DISTRESS [None]
  - UNEVALUABLE EVENT [None]
  - INJURY [None]
  - RENAL IMPAIRMENT [None]
  - ANHEDONIA [None]
